FAERS Safety Report 16888082 (Version 2)
Quarter: 2019Q4

REPORT INFORMATION
  Report Type: Report from Study
  Country: None (occurrence: BE)
  Receive Date: 20191006
  Receipt Date: 20191014
  Transmission Date: 20200122
  Serious: Yes (Hospitalization, Other)
  Sender: FDA-Public Use
  Company Number: BE-ABBVIE-19K-013-2945274-00

PATIENT
  Sex: Female

DRUGS (4)
  1. DUODOPA [Suspect]
     Active Substance: CARBIDOPA\LEVODOPA
     Dosage: MD=4.2ML, CD=1.1ML/HR DURING 16HRS, ED=1ML
     Route: 050
     Dates: start: 20180425, end: 20190930
  2. DUODOPA [Suspect]
     Active Substance: CARBIDOPA\LEVODOPA
     Dosage: MD=4.2ML, CD=1ML/HR DURING 16HRS, ED=1ML
     Route: 050
     Dates: start: 20190930
  3. DUODOPA [Suspect]
     Active Substance: CARBIDOPA\LEVODOPA
     Indication: PARKINSON^S DISEASE
     Dosage: MD=6.5ML, CD=1ML/HR DURING 16HRS, ED=1ML
     Route: 050
     Dates: start: 20180129, end: 20180202
  4. DUODOPA [Suspect]
     Active Substance: CARBIDOPA\LEVODOPA
     Dosage: MD=4ML, CD=1.2ML/HR DURING 16HRS, ED=1ML
     Route: 050
     Dates: start: 20180202, end: 20180425

REACTIONS (5)
  - Infection [Unknown]
  - Inflammation [Unknown]
  - Breast cancer female [Unknown]
  - White blood cell count decreased [Unknown]
  - Dyskinesia [Unknown]
